FAERS Safety Report 9657347 (Version 1)
Quarter: 2013Q4

REPORT INFORMATION
  Report Type: Spontaneous
  Country: FR (occurrence: FR)
  Receive Date: 20131030
  Receipt Date: 20131030
  Transmission Date: 20140711
  Serious: Yes (Hospitalization)
  Sender: FDA-Public Use
  Company Number: FR-GLAXOSMITHKLINE-B0933832A

PATIENT
  Age: 42 Year
  Sex: Female

DRUGS (2)
  1. HYCAMTIN [Suspect]
     Indication: METASTATIC UTERINE CANCER
     Route: 042
     Dates: start: 20130604, end: 20130814
  2. CISPLATINE [Concomitant]
     Indication: METASTATIC UTERINE CANCER
     Route: 065
     Dates: start: 20130604

REACTIONS (2)
  - Prurigo [Recovered/Resolved]
  - Malaise [Recovered/Resolved]
